FAERS Safety Report 18970596 (Version 1)
Quarter: 2021Q1

REPORT INFORMATION
  Report Type: Spontaneous
  Country: US (occurrence: US)
  Receive Date: 20210304
  Receipt Date: 20210304
  Transmission Date: 20210420
  Serious: Yes (Hospitalization)
  Sender: FDA-Public Use
  Company Number: US-ELI_LILLY_AND_COMPANY-US202102010577

PATIENT
  Age: 57 Year
  Sex: Female
  Weight: 66.7 kg

DRUGS (9)
  1. MELATONIN [Concomitant]
     Active Substance: MELATONIN
  2. BAMLANIVIMAB 700MG [Suspect]
     Active Substance: BAMLANIVIMAB
     Indication: COVID-19
     Dosage: 700 MG, SINGLE
     Route: 042
     Dates: start: 20210208, end: 20210208
  3. BUPROPION. [Concomitant]
     Active Substance: BUPROPION
  4. FAMOTIDINE. [Concomitant]
     Active Substance: FAMOTIDINE
  5. DECADRON [Suspect]
     Active Substance: DEXAMETHASONE
     Indication: PRODUCT USED FOR UNKNOWN INDICATION
     Dosage: UNK, UNKNOWN
     Route: 065
     Dates: start: 20210207
  6. FLUTICASONE. [Concomitant]
     Active Substance: FLUTICASONE
  7. ZINC. [Concomitant]
     Active Substance: ZINC
  8. MONTELUKAST [Concomitant]
     Active Substance: MONTELUKAST SODIUM
  9. BECLOMETHASONE [BECLOMETASONE DIPROPIONATE] [Concomitant]
     Active Substance: BECLOMETHASONE DIPROPIONATE

REACTIONS (2)
  - Sinus arrhythmia [Unknown]
  - Blood glucose increased [Unknown]

NARRATIVE: CASE EVENT DATE: 20210210
